FAERS Safety Report 7804642 (Version 3)
Quarter: 2014Q1

REPORT INFORMATION
  Report Type: Spontaneous
  Country: US (occurrence: US)
  Receive Date: 20110208
  Receipt Date: 20140205
  Transmission Date: 20141002
  Serious: Yes (Other)
  Sender: FDA-Public Use
  Company Number: US-US-EMD SERONO, INC.-7003290

PATIENT
  Age: 62 Year
  Sex: Female

DRUGS (1)
  1. REBIF [Suspect]
     Indication: MULTIPLE SCLEROSIS
     Route: 058
     Dates: start: 20020705

REACTIONS (11)
  - Oesophageal stenosis [Recovered/Resolved]
  - Peptic ulcer [Recovered/Resolved]
  - Hiatus hernia [Not Recovered/Not Resolved]
  - Muscle strain [Unknown]
  - Gastrooesophageal reflux disease [Not Recovered/Not Resolved]
  - Carpal tunnel syndrome [Unknown]
  - Faecal incontinence [Not Recovered/Not Resolved]
  - Vasodilatation [Unknown]
  - Muscle spasticity [Not Recovered/Not Resolved]
  - Pain in extremity [Not Recovered/Not Resolved]
  - Urinary incontinence [Not Recovered/Not Resolved]
